FAERS Safety Report 23072941 (Version 1)
Quarter: 2023Q4

REPORT INFORMATION
  Report Type: Spontaneous
  Country: PR (occurrence: PR)
  Receive Date: 20231017
  Receipt Date: 20231017
  Transmission Date: 20240109
  Serious: No
  Sender: FDA-Public Use
  Company Number: PR-BRISTOL-MYERS SQUIBB COMPANY-2023-147260

PATIENT
  Age: 62 Year
  Sex: Female

DRUGS (1)
  1. REVLIMID [Suspect]
     Active Substance: LENALIDOMIDE
     Indication: Plasma cell myeloma
     Dosage: FREQUENCY: DAILY 21 DAYS ON AND 7 DAYS OFF
     Route: 048
     Dates: start: 20190325

REACTIONS (2)
  - SARS-CoV-2 test positive [Recovering/Resolving]
  - Monoclonal immunoglobulin present [Recovering/Resolving]

NARRATIVE: CASE EVENT DATE: 20230801
